FAERS Safety Report 13100252 (Version 6)
Quarter: 2019Q3

REPORT INFORMATION
  Report Type: Spontaneous
  Country: US (occurrence: US)
  Receive Date: 20170110
  Receipt Date: 20190917
  Transmission Date: 20191004
  Serious: Yes (Hospitalization, Other)
  Sender: FDA-Public Use
  Company Number: US-BIOGEN-2017BI00339454

PATIENT
  Age: 44 Year
  Sex: Male

DRUGS (2)
  1. TYSABRI [Suspect]
     Active Substance: NATALIZUMAB
     Indication: MULTIPLE SCLEROSIS
     Route: 065
     Dates: start: 2014, end: 2016
  2. TYSABRI [Suspect]
     Active Substance: NATALIZUMAB
     Route: 065
     Dates: start: 20130123, end: 20170209

REACTIONS (16)
  - Candida infection [Recovered/Resolved]
  - Diarrhoea [Unknown]
  - Dyspepsia [Not Recovered/Not Resolved]
  - Fungal oesophagitis [Recovered/Resolved]
  - Gastrointestinal fungal infection [Not Recovered/Not Resolved]
  - Multiple sclerosis [Unknown]
  - Multiple sclerosis relapse [Recovered/Resolved]
  - Weight decreased [Unknown]
  - Hiatus hernia [Recovered/Resolved]
  - Gastritis fungal [Not Recovered/Not Resolved]
  - Lethargy [Unknown]
  - Dehydration [Unknown]
  - Renal cyst [Unknown]
  - Vomiting [Unknown]
  - Dysphagia [Unknown]
  - White blood cell count decreased [Unknown]

NARRATIVE: CASE EVENT DATE: 20160720
